FAERS Safety Report 7946786-0 (Version None)
Quarter: 2011Q4

REPORT INFORMATION
  Report Type: 
  Country: None (occurrence: None)
  Receive Date: 20111123
  Receipt Date: 20111118
  Transmission Date: 20120403
  Serious: Yes (Hospitalization, Other)
  Sender: FDA-Public Use
  Company Number: AUR-APL-2011-05877

PATIENT
  Age: 50 Year
  Sex: Male

DRUGS (22)
  1. FLUOXETINE HYDROCHLORIDE [Concomitant]
  2. CITALOPRAM HYDROBROMIDE [Suspect]
     Indication: DEPRESSION
     Dosage: 20 MG (20 MG,1 IN 1 D) ; 40 M (40 MG,1 IN 1 D)
     Dates: start: 20070101, end: 20070801
  3. CITALOPRAM HYDROBROMIDE [Suspect]
     Indication: ANXIETY
     Dosage: 20 MG (20 MG,1 IN 1 D) ; 40 M (40 MG,1 IN 1 D)
     Dates: start: 20070101, end: 20070801
  4. CITALOPRAM HYDROBROMIDE [Suspect]
     Indication: DEPRESSION
     Dosage: 20 MG (20 MG,1 IN 1 D) ; 40 M (40 MG,1 IN 1 D)
     Dates: start: 20070801, end: 20080401
  5. CITALOPRAM HYDROBROMIDE [Suspect]
     Indication: ANXIETY
     Dosage: 20 MG (20 MG,1 IN 1 D) ; 40 M (40 MG,1 IN 1 D)
     Dates: start: 20070801, end: 20080401
  6. DIAZEPAM [Concomitant]
  7. IMIPRAMINE [Concomitant]
  8. EFFEXOR XR [Suspect]
     Indication: ANXIETY
     Dosage: 225 MG (225 MG,1 IN 1 D) ; 150 MG (75 MG,2 IN 1 D) ; 75 MG (75 MG,1 IN 1 D)
     Dates: start: 20080606, end: 20081106
  9. EFFEXOR XR [Suspect]
     Indication: DEPRESSION
     Dosage: 225 MG (225 MG,1 IN 1 D) ; 150 MG (75 MG,2 IN 1 D) ; 75 MG (75 MG,1 IN 1 D)
     Dates: start: 20080606, end: 20081106
  10. EFFEXOR XR [Suspect]
     Indication: ANXIETY
     Dosage: 225 MG (225 MG,1 IN 1 D) ; 150 MG (75 MG,2 IN 1 D) ; 75 MG (75 MG,1 IN 1 D)
     Dates: start: 20081107, end: 20081114
  11. EFFEXOR XR [Suspect]
     Indication: DEPRESSION
     Dosage: 225 MG (225 MG,1 IN 1 D) ; 150 MG (75 MG,2 IN 1 D) ; 75 MG (75 MG,1 IN 1 D)
     Dates: start: 20081107, end: 20081114
  12. EFFEXOR XR [Suspect]
     Indication: ANXIETY
     Dosage: 225 MG (225 MG,1 IN 1 D) ; 150 MG (75 MG,2 IN 1 D) ; 75 MG (75 MG,1 IN 1 D)
     Dates: start: 20081115, end: 20081121
  13. EFFEXOR XR [Suspect]
     Indication: DEPRESSION
     Dosage: 225 MG (225 MG,1 IN 1 D) ; 150 MG (75 MG,2 IN 1 D) ; 75 MG (75 MG,1 IN 1 D)
     Dates: start: 20081115, end: 20081121
  14. EFFEXOR [Suspect]
     Indication: DEPRESSION
     Dosage: SEE IMAGE
     Dates: start: 20080529, end: 20080605
  15. EFFEXOR [Suspect]
     Indication: ANXIETY
     Dosage: SEE IMAGE
     Dates: start: 20080529, end: 20080605
  16. EFFEXOR [Suspect]
     Indication: DEPRESSION
     Dosage: SEE IMAGE
     Dates: start: 20080421, end: 20080428
  17. EFFEXOR [Suspect]
     Indication: ANXIETY
     Dosage: SEE IMAGE
     Dates: start: 20080421, end: 20080428
  18. EFFEXOR [Suspect]
     Indication: DEPRESSION
     Dosage: SEE IMAGE
     Dates: start: 20080429, end: 20080508
  19. EFFEXOR [Suspect]
     Indication: ANXIETY
     Dosage: SEE IMAGE
     Dates: start: 20080429, end: 20080508
  20. EFFEXOR [Suspect]
     Indication: DEPRESSION
     Dosage: SEE IMAGE
     Dates: start: 20080509, end: 20080528
  21. EFFEXOR [Suspect]
     Indication: ANXIETY
     Dosage: SEE IMAGE
     Dates: start: 20080509, end: 20080528
  22. OLANZAPINE [Concomitant]

REACTIONS (20)
  - FALL [None]
  - CLUMSINESS [None]
  - ACTIVITIES OF DAILY LIVING IMPAIRED [None]
  - SALIVARY HYPERSECRETION [None]
  - DYSKINESIA [None]
  - GAIT DISTURBANCE [None]
  - SPEECH DISORDER [None]
  - APHASIA [None]
  - BALANCE DISORDER [None]
  - DYSARTHRIA [None]
  - ASTHENIA [None]
  - EYE MOVEMENT DISORDER [None]
  - AFFECT LABILITY [None]
  - CEREBELLAR SYNDROME [None]
  - COORDINATION ABNORMAL [None]
  - BULBAR PALSY [None]
  - APATHY [None]
  - WEIGHT DECREASED [None]
  - DEMENTIA [None]
  - DYSPHAGIA [None]
